FAERS Safety Report 9387281 (Version 1)
Quarter: 2013Q3

REPORT INFORMATION
  Report Type: Spontaneous
  Country: FR (occurrence: None)
  Receive Date: 20130702
  Receipt Date: 20130702
  Transmission Date: 20140515
  Serious: Yes (Hospitalization)
  Sender: FDA-Public Use
  Company Number: FK201302206

PATIENT
  Age: 6 Year
  Sex: Male

DRUGS (2)
  1. VALPROATE [Suspect]
     Indication: CONVULSION
     Dates: start: 200707
  2. LEVETIRACETAM (LEVETIRACETAM) [Concomitant]

REACTIONS (2)
  - Ascites [None]
  - Pancreatitis acute [None]
